FAERS Safety Report 10027875 (Version 4)
Quarter: 2015Q2

REPORT INFORMATION
  Report Type: Spontaneous
  Country: US (occurrence: US)
  Receive Date: 20140321
  Receipt Date: 20150617
  Transmission Date: 20150821
  Serious: Yes (Death, Hospitalization)
  Sender: FDA-Public Use
  Company Number: US-SA-2014SA032815

PATIENT
  Age: 63 Year
  Sex: Male

DRUGS (17)
  1. NITRO [Concomitant]
     Active Substance: NITROGLYCERIN
     Route: 062
  2. LASIX [Concomitant]
     Active Substance: FUROSEMIDE
     Route: 048
  3. GABAPENTIN. [Concomitant]
     Active Substance: GABAPENTIN
     Route: 048
  4. AMIODARONE [Concomitant]
     Active Substance: AMIODARONE
  5. HYDRALAZINE [Concomitant]
     Active Substance: HYDRALAZINE HYDROCHLORIDE
     Route: 048
  6. FOSRENOL [Concomitant]
     Active Substance: LANTHANUM CARBONATE
     Route: 048
  7. LORTAB [Concomitant]
     Active Substance: ACETAMINOPHEN\HYDROCODONE BITARTRATE
  8. ROLAIDS [Concomitant]
     Active Substance: CALCIUM CARBONATE\MAGNESIUM HYDROXIDE
     Route: 048
  9. ASPIRIN. [Concomitant]
     Active Substance: ASPIRIN
     Route: 048
  10. PRILOSEC [Concomitant]
     Active Substance: OMEPRAZOLE MAGNESIUM
  11. METOPROLOL [Concomitant]
     Active Substance: METOPROLOL
     Route: 048
  12. OMEPRAZOLE. [Concomitant]
     Active Substance: OMEPRAZOLE
     Route: 048
  13. AFRIN [Concomitant]
     Active Substance: OXYMETAZOLINE
  14. PLAVIX [Suspect]
     Active Substance: CLOPIDOGREL BISULFATE
     Indication: MYOCARDIAL INFARCTION
     Route: 048
     Dates: start: 20090716, end: 20110414
  15. PLAVIX [Suspect]
     Active Substance: CLOPIDOGREL BISULFATE
     Indication: ACUTE CORONARY SYNDROME
     Route: 048
     Dates: start: 20090716, end: 20110414
  16. LISINOPRIL. [Concomitant]
     Active Substance: LISINOPRIL
     Route: 048
  17. RENAL CAPS [Concomitant]
     Route: 048

REACTIONS (3)
  - Gastrointestinal haemorrhage [Fatal]
  - Multiple injuries [Unknown]
  - Cardiac arrest [Fatal]

NARRATIVE: CASE EVENT DATE: 20090901
